FAERS Safety Report 23588604 (Version 1)
Quarter: 2024Q1

REPORT INFORMATION
  Report Type: Spontaneous
  Country: ES (occurrence: ES)
  Receive Date: 20240302
  Receipt Date: 20240302
  Transmission Date: 20240409
  Serious: Yes (Other)
  Sender: FDA-Public Use
  Company Number: None

PATIENT
  Age: 34 Year
  Sex: Female
  Weight: 50 kg

DRUGS (4)
  1. BIKTARVY [Suspect]
     Active Substance: BICTEGRAVIR SODIUM\EMTRICITABINE\TENOFOVIR ALAFENAMIDE FUMARATE
     Indication: Asymptomatic HIV infection
     Dosage: 1.0 COMP C/24 H
     Route: 048
     Dates: start: 20230912, end: 20240213
  2. CALCIFEDIOL [Concomitant]
     Active Substance: CALCIFEDIOL
     Indication: Vitamin D decreased
     Dosage: 16,000 IU Q30 DAYS
     Route: 048
     Dates: start: 20230819
  3. CETIRIZINE TEVA [Concomitant]
     Indication: Hypersensitivity
     Dosage: 10.0 MG DE
     Route: 048
     Dates: start: 20201231
  4. FLUTICASONE FUROATE [Concomitant]
     Active Substance: FLUTICASONE FUROATE
     Indication: Hypersensitivity
     Dosage: 55.0 MCG C/24 H
     Route: 045
     Dates: start: 20200227

REACTIONS (2)
  - Anxiety [Recovering/Resolving]
  - Initial insomnia [Recovering/Resolving]

NARRATIVE: CASE EVENT DATE: 20230915
